FAERS Safety Report 24206897 (Version 1)
Quarter: 2024Q3

REPORT INFORMATION
  Report Type: Spontaneous
  Country: US (occurrence: US)
  Receive Date: 20240813
  Receipt Date: 20240813
  Transmission Date: 20241016
  Serious: No
  Sender: JOHNSON AND JOHNSON
  Company Number: US-JNJFOC-20240829366

PATIENT
  Age: 54 Year
  Sex: Female
  Weight: 47.6 kg

DRUGS (17)
  1. OPSUMIT [Suspect]
     Active Substance: MACITENTAN
     Indication: Product used for unknown indication
     Route: 048
  2. TYVASO DPI [Suspect]
     Active Substance: TREPROSTINIL
     Indication: Pulmonary arterial hypertension
  3. TYVASO DPI [Suspect]
     Active Substance: TREPROSTINIL
     Dates: start: 20230130
  4. ANORO ELLIPTA [Concomitant]
     Active Substance: UMECLIDINIUM BROMIDE\VILANTEROL TRIFENATATE
  5. FUROSEMIDE [Concomitant]
     Active Substance: FUROSEMIDE
  6. ADEMPAS [Concomitant]
     Active Substance: RIOCIGUAT
  7. ACETAMINOPHEN\HYDROCODONE [Concomitant]
     Active Substance: ACETAMINOPHEN\HYDROCODONE
  8. SYNTHROID [Concomitant]
     Active Substance: LEVOTHYROXINE SODIUM
  9. AUGMENTIN [Concomitant]
     Active Substance: AMOXICILLIN\CLAVULANATE POTASSIUM
  10. ELIQUIS [Concomitant]
     Active Substance: APIXABAN
  11. ALBUTEROL SULFATE [Concomitant]
     Active Substance: ALBUTEROL SULFATE
  12. BIOFREEZE [Concomitant]
     Active Substance: MENTHOL
  13. BENZONATATE [Concomitant]
     Active Substance: BENZONATATE
  14. CALCIUM [Concomitant]
     Active Substance: CALCIUM
  15. OXYGEN [Concomitant]
     Active Substance: OXYGEN
  16. OMEPRAZOLE [Concomitant]
     Active Substance: OMEPRAZOLE
  17. AZITHROMYCIN [Concomitant]
     Active Substance: AZITHROMYCIN

REACTIONS (3)
  - Malaise [Not Recovered/Not Resolved]
  - Headache [Unknown]
  - Cough [Unknown]
